FAERS Safety Report 8220708-X (Version None)
Quarter: 2012Q1

REPORT INFORMATION
  Report Type: 
  Country: None (occurrence: None)
  Receive Date: 20120320
  Receipt Date: 20120316
  Transmission Date: 20120608
  Serious: Yes (Other)
  Sender: FDA-Public Use
  Company Number: SG-JNJFOC-20120305484

PATIENT
  Age: 40 Year
  Sex: Male

DRUGS (6)
  1. LORATADINE [Suspect]
     Indication: INFLUENZA
     Route: 065
     Dates: start: 20111230, end: 20111230
  2. ETORICOXIB [Suspect]
     Indication: PYREXIA
     Route: 048
     Dates: start: 20111230, end: 20111230
  3. ZYRTEC-D 12 HOUR [Suspect]
     Indication: INFLUENZA
     Route: 065
     Dates: start: 20111230, end: 20111230
  4. ZYRTEC-D 12 HOUR [Suspect]
     Route: 065
  5. PSEUDOEPHEDRINE HCL [Suspect]
     Route: 065
  6. PSEUDOEPHEDRINE HCL [Suspect]
     Indication: INFLUENZA
     Route: 065
     Dates: start: 20111230, end: 20111230

REACTIONS (4)
  - ANGIOEDEMA [None]
  - ERYTHEMA [None]
  - NAUSEA [None]
  - DIZZINESS [None]
